FAERS Safety Report 23807331 (Version 1)
Quarter: 2024Q2

REPORT INFORMATION
  Report Type: Spontaneous
  Country: None (occurrence: US)
  Receive Date: 20240502
  Receipt Date: 20240502
  Transmission Date: 20240716
  Serious: No
  Sender: FDA-Public Use
  Company Number: US-RECKITT BENCKISER HEALTHCARE INT LIMITED-RB-140363-2023

PATIENT
  Sex: Female

DRUGS (1)
  1. MUCINEX DM [Suspect]
     Active Substance: DEXTROMETHORPHAN HYDROBROMIDE\GUAIFENESIN
     Indication: Asthma
     Dosage: UNKNOWN
     Route: 048

REACTIONS (3)
  - Incorrect product administration duration [Unknown]
  - Drug ineffective for unapproved indication [Unknown]
  - Contraindicated product administered [Unknown]
